FAERS Safety Report 6867706-6 (Version None)
Quarter: 2010Q3

REPORT INFORMATION
  Report Type: 
  Country: None (occurrence: None)
  Receive Date: 20100722
  Receipt Date: 20100528
  Transmission Date: 20110219
  Serious: No
  Sender: FDA-Public Use
  Company Number: US-BAUSCH-2010BL002878

PATIENT
  Age: 62 Year
  Sex: Female

DRUGS (2)
  1. OPCON-A [Suspect]
     Indication: DRY EYE
     Route: 047
     Dates: start: 20100528, end: 20100528
  2. SOOTHE XP [Concomitant]
     Indication: DRY EYE

REACTIONS (3)
  - EXPIRED DRUG ADMINISTERED [None]
  - EYE PRURITUS [None]
  - WRONG DRUG ADMINISTERED [None]
